FAERS Safety Report 9273240 (Version 1)
Quarter: 2013Q2

REPORT INFORMATION
  Report Type: Spontaneous
  Country: US (occurrence: US)
  Receive Date: 20130506
  Receipt Date: 20130506
  Transmission Date: 20140414
  Serious: No
  Sender: FDA-Public Use
  Company Number: US-AMGEN-USASP2013024189

PATIENT
  Age: 81 Year
  Sex: Male

DRUGS (1)
  1. ENBREL [Suspect]
     Indication: RHEUMATOID ARTHRITIS
     Dosage: 50 MG, 2 TIMES/WK
     Dates: start: 20050101, end: 20130328

REACTIONS (3)
  - Ear pain [Not Recovered/Not Resolved]
  - Hearing impaired [Not Recovered/Not Resolved]
  - Nasopharyngitis [Not Recovered/Not Resolved]
